FAERS Safety Report 9945973 (Version 2)
Quarter: 2014Q1

REPORT INFORMATION
  Report Type: Spontaneous
  Country: US (occurrence: US)
  Receive Date: 20140303
  Receipt Date: 20140303
  Transmission Date: 20141002
  Serious: No
  Sender: FDA-Public Use
  Company Number: US-AMGEN-USASP2013070196

PATIENT
  Age: 51 Year
  Sex: Female
  Weight: 118.82 kg

DRUGS (7)
  1. ENBREL [Suspect]
     Indication: RHEUMATOID ARTHRITIS
     Dosage: 50 MG, QWK
     Route: 058
     Dates: start: 20130819
  2. METHOTREXATE [Concomitant]
     Dosage: 2.5 MG, UNK
  3. LEUCOVORIN                         /00566701/ [Concomitant]
     Dosage: UNK
  4. NAPROXEN                           /00256202/ [Concomitant]
     Dosage: 250 MG, UNK
  5. FOLIC ACID [Concomitant]
     Dosage: UNK
  6. MULTIVITAMINS, PLAIN [Concomitant]
     Dosage: UNK
  7. BROMALINE DM [Concomitant]
     Dosage: UNK

REACTIONS (9)
  - Arthralgia [Unknown]
  - Hyperhidrosis [Unknown]
  - Hot flush [Unknown]
  - Increased tendency to bruise [Unknown]
  - Nausea [Unknown]
  - Alopecia [Unknown]
  - Arthropod bite [Unknown]
  - Dizziness [Unknown]
  - Abdominal discomfort [Unknown]
